FAERS Safety Report 8834283 (Version 1)
Quarter: 2012Q4

REPORT INFORMATION
  Report Type: 
  Country: US (occurrence: US)
  Receive Date: 20121010
  Receipt Date: 20121010
  Transmission Date: 20130627
  Serious: Yes (Other)
  Sender: FDA-Public Use
  Company Number: US-ELI_LILLY_AND_COMPANY-US201209008354

PATIENT
  Age: 55 Year
  Sex: Female

DRUGS (6)
  1. CYMBALTA [Suspect]
     Indication: TRIGEMINAL NEURALGIA
     Dosage: 30 mg, bid
     Dates: start: 2008
  2. CYMBALTA [Suspect]
     Dosage: 60 mg, bid
  3. IBUPROFEN [Concomitant]
  4. OXYCODONE [Concomitant]
  5. KLONOPIN [Concomitant]
  6. XANAX [Concomitant]

REACTIONS (16)
  - Trigeminal neuralgia [Unknown]
  - Pain [Not Recovered/Not Resolved]
  - Toothache [Unknown]
  - Swelling [Unknown]
  - Hallucination [Unknown]
  - Insomnia [Unknown]
  - Sleep disorder [Unknown]
  - Migraine [Unknown]
  - Crying [Unknown]
  - Nausea [Unknown]
  - Fear [Unknown]
  - Paraesthesia oral [Unknown]
  - Dizziness [Unknown]
  - Vision blurred [Unknown]
  - Hypersensitivity [Unknown]
  - Off label use [Unknown]
